FAERS Safety Report 9258415 (Version 2)
Quarter: 2014Q1

REPORT INFORMATION
  Report Type: Spontaneous
  Country: US (occurrence: None)
  Receive Date: 20121212
  Receipt Date: 20130314
  Transmission Date: 20141002
  Serious: No
  Sender: FDA-Public Use
  Company Number: 1209USA009743

PATIENT
  Age: 33 Year
  Sex: Male

DRUGS (3)
  1. VICTRELIS [Suspect]
     Indication: HEPATITIS C
     Dosage: 4 DF
     Route: 048
     Dates: start: 20120907
  2. RIBAPAK [Suspect]
  3. PEGASYS (PEGINTERFERON ALFA-2A) [Suspect]

REACTIONS (1)
  - Fatigue [None]
